FAERS Safety Report 7920210-6 (Version None)
Quarter: 2011Q4

REPORT INFORMATION
  Report Type: 
  Country: None (occurrence: None)
  Receive Date: 20111117
  Receipt Date: 20111114
  Transmission Date: 20120403
  Serious: Yes (Other)
  Sender: FDA-Public Use
  Company Number: CA-PFIZER INC-2011278416

PATIENT
  Age: 86 Year
  Sex: Female

DRUGS (5)
  1. CALCIUM [Concomitant]
     Dosage: UNK
  2. LYRICA [Suspect]
     Indication: HERPES ZOSTER
     Dosage: 50 MG, 2X/DAY
  3. SENOKOT [Concomitant]
     Dosage: UNK
  4. ACETAMINOPHEN [Concomitant]
     Dosage: UNK
  5. VESICARE [Concomitant]
     Dosage: UNK

REACTIONS (4)
  - MUSCLE SPASMS [None]
  - CARDIAC PACEMAKER INSERTION [None]
  - FACIAL PAIN [None]
  - MASTICATION DISORDER [None]
